FAERS Safety Report 20725000 (Version 1)
Quarter: 2022Q2

REPORT INFORMATION
  Report Type: Spontaneous
  Country: US (occurrence: None)
  Receive Date: 20220418
  Receipt Date: 20220418
  Transmission Date: 20220721
  Serious: Yes (Other)
  Sender: FDA-Public Use
  Company Number: None

PATIENT
  Age: 6 Year
  Sex: Male
  Weight: 20.25 kg

DRUGS (6)
  1. COUGH DM [Suspect]
     Active Substance: DEXTROMETHORPHAN HYDROBROMIDE
     Indication: Cough
     Dosage: OTHER QUANTITY : 1 ML;?FREQUENCY : EVERY 12 HOURS;?
     Route: 048
     Dates: start: 20220418, end: 20220418
  2. GUANFACINE [Concomitant]
     Active Substance: GUANFACINE
  3. LEXAPRO [Concomitant]
     Active Substance: ESCITALOPRAM OXALATE
  4. VITAMINS [Concomitant]
     Active Substance: VITAMINS
  5. IRON [Concomitant]
     Active Substance: IRON
  6. MELATONIN [Concomitant]
     Active Substance: MELATONIN

REACTIONS (3)
  - Somnolence [None]
  - Hypopnoea [None]
  - Lethargy [None]

NARRATIVE: CASE EVENT DATE: 20220418
